FAERS Safety Report 8879076 (Version 1)
Quarter: 2012Q4

REPORT INFORMATION
  Report Type: Spontaneous
  Country: US (occurrence: None)
  Receive Date: 20121031
  Receipt Date: 20121031
  Transmission Date: 20130627
  Serious: No
  Sender: FDA-Public Use
  Company Number: None

PATIENT
  Age: 56 Year
  Sex: Male
  Weight: 82.3 kg

DRUGS (1)
  1. ENALAPRIL [Suspect]
     Dosage: 5 MG BID PO
     Route: 048
     Dates: start: 20120910, end: 20120912

REACTIONS (1)
  - Angioedema [None]
